FAERS Safety Report 8880484 (Version 1)
Quarter: 2012Q4

REPORT INFORMATION
  Report Type: Report from Study
  Country: CA (occurrence: CA)
  Receive Date: 20121031
  Receipt Date: 20121031
  Transmission Date: 20130627
  Serious: Yes (Other)
  Sender: FDA-Public Use
  Company Number: CA-ROCHE-1150318

PATIENT
  Age: 55 None
  Sex: Male

DRUGS (5)
  1. VEMURAFENIB [Suspect]
     Indication: METASTATIC MALIGNANT MELANOMA
     Route: 048
  2. CO-METFORMIN [Concomitant]
     Route: 048
  3. WARFARIN [Concomitant]
     Route: 048
  4. MIDAMOR [Concomitant]
     Route: 048
  5. CO-ENALAPRIL [Concomitant]
     Route: 048

REACTIONS (2)
  - Tongue disorder [Not Recovered/Not Resolved]
  - Lower respiratory tract infection [Not Recovered/Not Resolved]
